FAERS Safety Report 7918702-9 (Version None)
Quarter: 2011Q4

REPORT INFORMATION
  Report Type: 
  Country: None (occurrence: None)
  Receive Date: 20111116
  Receipt Date: 20111114
  Transmission Date: 20120403
  Serious: Yes (Death)
  Sender: FDA-Public Use
  Company Number: GB-ABBOTT-11P-167-0838312-00

PATIENT
  Sex: Male
  Weight: 59 kg

DRUGS (7)
  1. HUMIRA [Suspect]
     Indication: PSORIASIS
     Route: 058
     Dates: start: 20100901, end: 20110427
  2. HUMIRA [Suspect]
     Indication: ERYTHRODERMIC PSORIASIS
  3. TEMAZEPAM [Concomitant]
     Indication: INSOMNIA
     Dosage: 1 IN 1 DAY AT NOCTE
     Route: 048
  4. USTEKINUMAB [Concomitant]
     Indication: PRODUCT USED FOR UNKNOWN INDICATION
  5. TOPICAL [Concomitant]
     Indication: PRODUCT USED FOR UNKNOWN INDICATION
  6. CHLORPHENIRAMINE MALEATE [Concomitant]
     Indication: SKIN IRRITATION
     Dosage: 12MG DAILY, 4MG 3 IN 1 DAY, TDS
     Route: 048
     Dates: start: 20100701
  7. ARTHROTEC [Concomitant]
     Indication: PSORIATIC ARTHROPATHY
     Route: 048
     Dates: start: 20090701

REACTIONS (4)
  - SUDDEN DEATH [None]
  - DRUG INEFFECTIVE [None]
  - ERYTHRODERMIC PSORIASIS [None]
  - MYOCARDIAL INFARCTION [None]
